FAERS Safety Report 5360355-0 (Version None)
Quarter: 2007Q2

REPORT INFORMATION
  Report Type: 
  Country: None (occurrence: None)
  Receive Date: 20070618
  Receipt Date: 20070605
  Transmission Date: 20071010
  Serious: Yes (Hospitalization)
  Sender: FDA-Public Use
  Company Number: FR-AMGEN-US222685

PATIENT
  Age: 44 Year
  Sex: Female

DRUGS (5)
  1. ENBREL [Suspect]
     Indication: PSORIASIS
     Route: 058
     Dates: start: 20070410, end: 20070423
  2. ENBREL [Suspect]
     Route: 058
     Dates: start: 20070424
  3. DIPROLENE [Concomitant]
     Indication: PSORIASIS
     Dosage: ABOUT 3 CREAM TUBES DAILY
     Route: 061
     Dates: start: 20070405, end: 20070409
  4. DIPROLENE [Concomitant]
     Dosage: 1 CREAM TUBE DAILY
     Route: 061
     Dates: start: 20070410, end: 20070419
  5. DIPROLENE [Concomitant]
     Dosage: ABOUT 4 CREAM TUBES DAILY
     Route: 061
     Dates: start: 20070420

REACTIONS (2)
  - CONDITION AGGRAVATED [None]
  - PUSTULAR PSORIASIS [None]
